FAERS Safety Report 12995213 (Version 1)
Quarter: 2016Q4

REPORT INFORMATION
  Report Type: Spontaneous
  Country: BR (occurrence: BR)
  Receive Date: 20161202
  Receipt Date: 20161202
  Transmission Date: 20170207
  Serious: Yes (Other)
  Sender: FDA-Public Use
  Company Number: BR-PFIZER INC-2016555758

PATIENT
  Age: 65 Year
  Sex: Female

DRUGS (5)
  1. INSULIN [Concomitant]
     Active Substance: INSULIN NOS
     Dosage: 18 IU, UNK
  2. METFORMIN [Concomitant]
     Active Substance: METFORMIN HYDROCHLORIDE
     Dosage: 850 MG, 3X/DAY
  3. RECONTER [Concomitant]
     Active Substance: ESCITALOPRAM OXALATE
     Dosage: UNK
  4. FRONTAL [Suspect]
     Active Substance: ALPRAZOLAM
     Indication: INJURY
     Dosage: 1 AT BEDTIME, 0.5 MG AT BREAKFAST AND 0.5 MG AT 14H
     Route: 048
     Dates: start: 1996
  5. CONCOR [Concomitant]
     Active Substance: BISOPROLOL FUMARATE
     Dosage: 2.5 MG (0.5 PER DAY), DAILY

REACTIONS (3)
  - Arrhythmia [Unknown]
  - Sleep apnoea syndrome [Unknown]
  - Product use issue [Unknown]
